FAERS Safety Report 18176636 (Version 1)
Quarter: 2020Q3

REPORT INFORMATION
  Report Type: Spontaneous
  Country: US (occurrence: US)
  Receive Date: 20200820
  Receipt Date: 20200820
  Transmission Date: 20201103
  Serious: Yes (Other)
  Sender: FDA-Public Use
  Company Number: US-PFIZER INC-2014106710

PATIENT
  Sex: Female

DRUGS (7)
  1. TOVIAZ [Suspect]
     Active Substance: FESOTERODINE FUMARATE
     Indication: INCONTINENCE
     Dosage: 4 MG, 1X/DAY (IN THE MORNING)
     Route: 048
  2. TOVIAZ [Suspect]
     Active Substance: FESOTERODINE FUMARATE
     Indication: BLADDER DISORDER
  3. MURO 128 [Concomitant]
     Active Substance: SODIUM CHLORIDE
     Dosage: UNK, 4X/DAY (FOUR TIMES A DAY, BOTH EYES)
     Route: 047
  4. NITROFURANTOIN MACROCRYSTALS [Concomitant]
     Active Substance: NITROFURANTOIN
     Dosage: 50 MG, DAILY (TAKE ONE CAPSULE BY MOUTH EVERY NIGHT AT BEDTIME)
     Route: 048
  5. ASPIRIN [ACETYLSALICYLIC ACID] [Concomitant]
     Active Substance: ASPIRIN
     Dosage: 81 MG, DAILY
     Route: 048
  6. ATENOLOL. [Concomitant]
     Active Substance: ATENOLOL
     Dosage: 25 MG, DAILY
     Route: 048
  7. ZESTRIL [Concomitant]
     Active Substance: LISINOPRIL
     Dosage: 20 MG, DAILY (TAKE ONE TABLET BY MOUTH EVERY DAY)
     Route: 048

REACTIONS (2)
  - Cardiac failure congestive [Unknown]
  - Therapeutic response shortened [Unknown]
